FAERS Safety Report 11794969 (Version 7)
Quarter: 2020Q1

REPORT INFORMATION
  Report Type: Spontaneous
  Country: GB (occurrence: GB)
  Receive Date: 20151202
  Receipt Date: 20200108
  Transmission Date: 20200409
  Serious: Yes (Life-Threatening, Hospitalization, Other)
  Sender: FDA-Public Use
  Company Number: GB-ELI_LILLY_AND_COMPANY-GB201511008548

PATIENT
  Age: 52 Year
  Sex: Male

DRUGS (27)
  1. ASPIRIN [ACETYLSALICYLIC ACID] [Suspect]
     Active Substance: ASPIRIN
     Indication: PRODUCT USED FOR UNKNOWN INDICATION
     Dosage: 75 MG, UNKNOWN
     Route: 065
     Dates: start: 20131008
  2. ANADIN [PARACETAMOL] [Suspect]
     Active Substance: ACETAMINOPHEN
     Indication: PRODUCT USED FOR UNKNOWN INDICATION
     Dosage: UNK, UNKNOWN
     Route: 065
  3. BISOPROLOL FUMARATE. [Suspect]
     Active Substance: BISOPROLOL FUMARATE
     Dosage: 16 DF, UNK
     Route: 065
     Dates: start: 20141201, end: 20141201
  4. IBUPROFEN. [Suspect]
     Active Substance: IBUPROFEN
     Indication: PRODUCT USED FOR UNKNOWN INDICATION
     Dosage: UNK UNK, UNKNOWN
     Route: 065
     Dates: start: 20141113
  5. IBUPROFEN. [Suspect]
     Active Substance: IBUPROFEN
     Dosage: 3200 MG, SINGLE
     Route: 065
     Dates: start: 20141201, end: 20141201
  6. RAMIPRIL. [Suspect]
     Active Substance: RAMIPRIL
     Indication: PRODUCT USED FOR UNKNOWN INDICATION
     Dosage: UNK
     Route: 065
     Dates: start: 20131010
  7. ATORVASTATIN [Concomitant]
     Active Substance: ATORVASTATIN
     Dosage: 20 MG, UNK
     Route: 065
     Dates: start: 20140110, end: 20140330
  8. TRAMADOL. [Concomitant]
     Active Substance: TRAMADOL
     Indication: PRODUCT USED FOR UNKNOWN INDICATION
     Dosage: TRAMADOL 50-100MG ORAL Q4H PRN
     Route: 065
     Dates: start: 20140416
  9. TRAMADOL. [Concomitant]
     Active Substance: TRAMADOL
     Dosage: 100 MG, PRN
     Route: 065
     Dates: start: 20140416
  10. ASPIRIN [ACETYLSALICYLIC ACID] [Suspect]
     Active Substance: ASPIRIN
     Dosage: 3600 MG, SINGLE
     Route: 065
     Dates: start: 20141201, end: 20141201
  11. BISOPROLOL FUMARATE. [Suspect]
     Active Substance: BISOPROLOL FUMARATE
     Indication: PRODUCT USED FOR UNKNOWN INDICATION
     Dosage: UNK
     Route: 065
     Dates: start: 20131008
  12. GLUCAGON. [Concomitant]
     Active Substance: GLUCAGON
     Indication: PRODUCT USED FOR UNKNOWN INDICATION
     Dosage: 4 MG, UNKNOWN
     Route: 042
     Dates: start: 20141201, end: 20141201
  13. FLUOXETINE [Suspect]
     Active Substance: FLUOXETINE HYDROCHLORIDE
     Dosage: 400 MG, SINGLE
     Route: 048
     Dates: start: 20141201, end: 20141201
  14. RAMIPRIL. [Suspect]
     Active Substance: RAMIPRIL
     Dosage: 140 MG, SINGLE
     Route: 065
     Dates: start: 20141201, end: 20141201
  15. ASPIRIN [ACETYLSALICYLIC ACID] [Suspect]
     Active Substance: ASPIRIN
     Dosage: 200 MG, UNKNOWN
     Route: 065
  16. CLOPIDOGREL [Suspect]
     Active Substance: CLOPIDOGREL BISULFATE
     Indication: PRODUCT USED FOR UNKNOWN INDICATION
     Dosage: UNK
     Route: 065
     Dates: start: 20131008
  17. CO-AMOXICLAV [AMOXICILLIN;CLAVULANATE POTASSI [Concomitant]
     Indication: PRODUCT USED FOR UNKNOWN INDICATION
     Dosage: 1200 MG, TID
     Route: 042
     Dates: start: 20140416, end: 20140418
  18. CO-AMOXICLAV [AMOXICILLIN;CLAVULANATE POTASSI [Concomitant]
     Dosage: 625 MG, TID
     Route: 048
     Dates: start: 20140418, end: 20140423
  19. CODEINE PHOSPHATE [Concomitant]
     Active Substance: CODEINE PHOSPHATE
     Indication: PRODUCT USED FOR UNKNOWN INDICATION
     Dosage: 30 MG, UNK
     Route: 048
     Dates: start: 20140416
  20. FLUOXETINE [Suspect]
     Active Substance: FLUOXETINE HYDROCHLORIDE
     Dosage: 20 MG, UNK
     Route: 048
     Dates: start: 20141217
  21. ATORVASTATIN [Concomitant]
     Active Substance: ATORVASTATIN
     Indication: PRODUCT USED FOR UNKNOWN INDICATION
     Dosage: 80 MG, UNKNOWN
     Route: 065
     Dates: start: 20131008, end: 20131219
  22. GLYCERYL TRINITRATE [Concomitant]
     Active Substance: NITROGLYCERIN
     Indication: PRODUCT USED FOR UNKNOWN INDICATION
     Dosage: UNK
     Route: 065
     Dates: start: 20131008
  23. FLUOXETINE [Suspect]
     Active Substance: FLUOXETINE HYDROCHLORIDE
     Indication: DEPRESSION
     Dosage: 20 MG, UNK
     Route: 048
     Dates: start: 20120813, end: 20141217
  24. AMLODIPINE [Suspect]
     Active Substance: AMLODIPINE BESYLATE
     Indication: PRODUCT USED FOR UNKNOWN INDICATION
     Dosage: UNK UNK, UNKNOWN
     Route: 065
     Dates: start: 20141001
  25. AMLODIPINE [Suspect]
     Active Substance: AMLODIPINE BESYLATE
     Dosage: 200 MG, SINGLE
     Route: 065
     Dates: start: 20141201, end: 20141201
  26. PARACETAMOL [Suspect]
     Active Substance: ACETAMINOPHEN
     Indication: PRODUCT USED FOR UNKNOWN INDICATION
     Dosage: UNK, UNKNOWN
     Route: 065
     Dates: start: 20140510, end: 20140521
  27. PARACETAMOL [Suspect]
     Active Substance: ACETAMINOPHEN
     Dosage: UNK
     Dates: start: 20140510, end: 20140510

REACTIONS (19)
  - Syncope [Recovered/Resolved]
  - Impulsive behaviour [Unknown]
  - Troponin increased [Unknown]
  - Hypotension [Recovered/Resolved]
  - Intentional overdose [Unknown]
  - Intentional self-injury [Unknown]
  - Bradycardia [Recovered/Resolved]
  - Depressed mood [Not Recovered/Not Resolved]
  - Emotional distress [Not Recovered/Not Resolved]
  - Fall [Recovered/Resolved]
  - X-ray abnormal [Unknown]
  - Pallor [Recovered/Resolved]
  - Diarrhoea haemorrhagic [Unknown]
  - Intentional overdose [Recovered/Resolved]
  - Inflammatory marker increased [Recovered/Resolved]
  - Suicide attempt [Recovered/Resolved]
  - Vomiting [Recovered/Resolved]
  - Suicidal ideation [Not Recovered/Not Resolved]
  - Nausea [Recovered/Resolved]

NARRATIVE: CASE EVENT DATE: 2013
